FAERS Safety Report 10563961 (Version 1)
Quarter: 2014Q4

REPORT INFORMATION
  Report Type: Spontaneous
  Country: FR (occurrence: FR)
  Receive Date: 20141104
  Receipt Date: 20141104
  Transmission Date: 20150529
  Serious: Yes (Hospitalization)
  Sender: FDA-Public Use
  Company Number: FR-ASTRAZENECA-2014SE81819

PATIENT
  Age: 60 Year
  Sex: Female

DRUGS (4)
  1. LAROXYL [Suspect]
     Active Substance: AMITRIPTYLINE
     Indication: MAJOR DEPRESSION
     Route: 048
     Dates: start: 20140801, end: 20140904
  2. LAROXYL [Suspect]
     Active Substance: AMITRIPTYLINE
     Indication: MAJOR DEPRESSION
     Route: 048
     Dates: start: 20140905
  3. LAROXYL [Suspect]
     Active Substance: AMITRIPTYLINE
     Indication: MAJOR DEPRESSION
     Route: 048
     Dates: start: 20140707, end: 20140731
  4. XEROQUEL [Suspect]
     Active Substance: QUETIAPINE FUMARATE
     Indication: MAJOR DEPRESSION
     Route: 048
     Dates: start: 20140707

REACTIONS (3)
  - Dry mouth [Not Recovered/Not Resolved]
  - Accidental overdose [Not Recovered/Not Resolved]
  - Antipsychotic drug level above therapeutic [Unknown]

NARRATIVE: CASE EVENT DATE: 201410
